FAERS Safety Report 7523471-0 (Version None)
Quarter: 2011Q2

REPORT INFORMATION
  Report Type: 
  Country: None (occurrence: None)
  Receive Date: 20110601
  Receipt Date: 20110601
  Transmission Date: 20111010
  Serious: Yes (Hospitalization)
  Sender: FDA-Public Use
  Company Number: None

PATIENT
  Sex: Female
  Weight: 74 kg

DRUGS (4)
  1. TAXOL [Suspect]
     Dosage: 0 MG
     Dates: end: 20110315
  2. DEXAMETHASONE [Suspect]
     Dosage: 10 MG
     Dates: end: 20110503
  3. DOXORUBICIN HYDROCHLORIDE [Suspect]
     Dosage: 106 MG
     Dates: end: 20110503
  4. CYCLOPHOSPHAMIDE [Suspect]
     Dosage: 1062 MG
     Dates: end: 20110503

REACTIONS (5)
  - TACHYCARDIA [None]
  - CHRONIC OBSTRUCTIVE PULMONARY DISEASE [None]
  - EMPHYSEMA [None]
  - HYPOXIA [None]
  - SEASONAL ALLERGY [None]
